FAERS Safety Report 8397988-3 (Version None)
Quarter: 2012Q2

REPORT INFORMATION
  Report Type: 
  Country: None (occurrence: None)
  Receive Date: 20120531
  Receipt Date: 20120530
  Transmission Date: 20120825
  Serious: Yes (Other)
  Sender: FDA-Public Use
  Company Number: PHHY2011NL099823

PATIENT
  Sex: Female

DRUGS (10)
  1. ZOMETA [Suspect]
     Dosage: 4 MG/ 5 ML ONCE IN 28 DAYS
     Dates: start: 20111013
  2. METOPROLOL TARTRATE [Concomitant]
  3. ZOMETA [Suspect]
     Dosage: 4 MG/100ML , 1X PER 28 DAYS
     Route: 042
     Dates: start: 20120302
  4. ZOMETA [Suspect]
     Dosage: 4 MG/100ML , 1X PER 28 DAYS
     Route: 042
     Dates: start: 20110722
  5. CALCIUM CARBONATE [Concomitant]
  6. OMEPRAZOLE [Concomitant]
  7. ACETYLSALICYLIC ACID SRT [Concomitant]
  8. ZOMETA [Suspect]
     Indication: MULTIPLE MYELOMA
     Dosage: 4 MG/ 5 ML ONCE IN 28 DAYS
     Dates: start: 20110622
  9. ZOMETA [Suspect]
     Dosage: 4 MG/ 5 ML ONCE IN 28 DAYS
     Dates: start: 20111111
  10. ZOMETA [Suspect]
     Dosage: 4 MG/100ML , 1X PER 28 DAYS
     Route: 042
     Dates: start: 20120330

REACTIONS (2)
  - COUGH [None]
  - PNEUMONIA [None]
